FAERS Safety Report 11894029 (Version 2)
Quarter: 2016Q2

REPORT INFORMATION
  Report Type: Report from Study
  Country: US (occurrence: US)
  Receive Date: 20160107
  Receipt Date: 20160405
  Transmission Date: 20160815
  Serious: Yes (Hospitalization)
  Sender: FDA-Public Use
  Company Number: US-EXELIXIS-XL18415005905

PATIENT
  Age: 60 Year
  Sex: Male

DRUGS (2)
  1. XL184 [Suspect]
     Active Substance: CABOZANTINIB
     Indication: KAPOSI^S SARCOMA
     Dosage: 60 MG, QD
     Route: 048
     Dates: start: 20140620
  2. BUPROPION. [Concomitant]
     Active Substance: BUPROPION

REACTIONS (1)
  - Seizure [Recovered/Resolved]

NARRATIVE: CASE EVENT DATE: 20151018
